FAERS Safety Report 14148501 (Version 1)
Quarter: 2017Q4

REPORT INFORMATION
  Report Type: Spontaneous
  Country: JP (occurrence: JP)
  Receive Date: 20171101
  Receipt Date: 20171101
  Transmission Date: 20180321
  Serious: Yes (Hospitalization)
  Sender: FDA-Public Use
  Company Number: JP-ORION CORPORATION ORION PHARMA-ENTC2017-0484

PATIENT
  Age: 68 Year
  Sex: Female

DRUGS (1)
  1. LEVODOPA-CARBIDOPA-ENTACAPONE [Suspect]
     Active Substance: CARBIDOPA\ENTACAPONE\LEVODOPA
     Indication: PARKINSON^S DISEASE
     Dosage: STRENGTH: 100 MG
     Route: 048

REACTIONS (7)
  - Therapeutic response shortened [Recovered/Resolved]
  - Freezing phenomenon [Recovering/Resolving]
  - On and off phenomenon [Recovering/Resolving]
  - Malabsorption [Recovered/Resolved]
  - Dyskinesia [Unknown]
  - Abdominal distension [Unknown]
  - Gait disturbance [Recovering/Resolving]
